FAERS Safety Report 9152470 (Version 5)
Quarter: 2015Q4

REPORT INFORMATION
  Report Type: Spontaneous
  Country: US (occurrence: US)
  Receive Date: 20130308
  Receipt Date: 20151021
  Transmission Date: 20160305
  Serious: Yes (Hospitalization, Disabling, Other)
  Sender: FDA-Public Use
  Company Number: US-009507513-1303USA001916

PATIENT
  Sex: Male
  Weight: 73.92 kg

DRUGS (1)
  1. PROPECIA [Suspect]
     Active Substance: FINASTERIDE
     Indication: ANDROGENETIC ALOPECIA
     Dosage: 1 MG, UNK
     Route: 048
     Dates: start: 20050402, end: 20060907

REACTIONS (33)
  - Vasectomy [Unknown]
  - Cognitive disorder [Not Recovered/Not Resolved]
  - Insomnia [Not Recovered/Not Resolved]
  - Gastrooesophageal reflux disease [Unknown]
  - Blood testosterone decreased [Unknown]
  - Anxiety disorder [Not Recovered/Not Resolved]
  - Varicocele [Unknown]
  - Knee deformity [Unknown]
  - Abdominal discomfort [Unknown]
  - Erectile dysfunction [Unknown]
  - Depression [Not Recovered/Not Resolved]
  - Genital hypoaesthesia [Unknown]
  - Arthralgia [Unknown]
  - Testicular swelling [Unknown]
  - Sexual dysfunction [Unknown]
  - Hypersensitivity [Unknown]
  - Hair growth abnormal [Unknown]
  - Headache [Not Recovered/Not Resolved]
  - Premature ejaculation [Unknown]
  - Adverse drug reaction [Unknown]
  - Insomnia [Unknown]
  - Gait disturbance [Unknown]
  - Loss of libido [Unknown]
  - Suicidal ideation [Not Recovered/Not Resolved]
  - Visual acuity reduced [Unknown]
  - Panic attack [Unknown]
  - Joint injury [Not Recovered/Not Resolved]
  - Tinnitus [Unknown]
  - Headache [Unknown]
  - Phimosis [Unknown]
  - Upper respiratory tract infection [Unknown]
  - Diarrhoea [Unknown]
  - Testicular pain [Unknown]

NARRATIVE: CASE EVENT DATE: 2005
